FAERS Safety Report 20923125 (Version 2)
Quarter: 2022Q2

REPORT INFORMATION
  Report Type: Report from Study
  Country: US (occurrence: US)
  Receive Date: 20220607
  Receipt Date: 20220622
  Transmission Date: 20220721
  Serious: Yes (Other)
  Sender: FDA-Public Use
  Company Number: US-SANOFI-01112833

PATIENT
  Age: 63 Year
  Sex: Female

DRUGS (14)
  1. DUPIXENT [Suspect]
     Active Substance: DUPILUMAB
     Indication: Dermatitis atopic
     Dosage: 600 MG, 1X
     Route: 058
     Dates: start: 20220420, end: 20220420
  2. DUPIXENT [Suspect]
     Active Substance: DUPILUMAB
     Indication: Dermatitis
     Dosage: 300 MG, QOW
     Route: 058
     Dates: start: 20220504
  3. DUPIXENT [Suspect]
     Active Substance: DUPILUMAB
     Indication: Eczema
  4. GLEEVEC [Concomitant]
     Active Substance: IMATINIB MESYLATE
  5. METAXALONE [Concomitant]
     Active Substance: METAXALONE
  6. METHYLPREDNISOLONE [Concomitant]
     Active Substance: METHYLPREDNISOLONE
  7. PEPCID [Concomitant]
     Active Substance: FAMOTIDINE
  8. MIRTAZAPINE [Concomitant]
     Active Substance: MIRTAZAPINE
  9. ESTROGENS\METHYLTESTOSTERONE [Concomitant]
     Active Substance: ESTROGENS\METHYLTESTOSTERONE
  10. GINKGO [Concomitant]
     Active Substance: GINKGO
  11. TERBINAFINE [Concomitant]
     Active Substance: TERBINAFINE
  12. HAIR, SKIN + NAILS [BIOTIN] [Concomitant]
  13. PLUMERIA RUBRA [Concomitant]
  14. VITAMIN D NOS [Concomitant]
     Active Substance: VITAMIN D NOS

REACTIONS (23)
  - Neuropathy peripheral [Unknown]
  - Pain [Unknown]
  - Paraesthesia [Unknown]
  - Fibromyalgia [Recovering/Resolving]
  - Muscle tightness [Unknown]
  - Stress [Unknown]
  - Gait disturbance [Unknown]
  - Neuropathic pruritus [Not Recovered/Not Resolved]
  - Myofascial spasm [Not Recovered/Not Resolved]
  - Musculoskeletal stiffness [Not Recovered/Not Resolved]
  - Miliaria [Not Recovered/Not Resolved]
  - Pruritus [Recovered/Resolved]
  - Arthralgia [Unknown]
  - Myalgia [Unknown]
  - Hypertension [Unknown]
  - Gait inability [Not Recovered/Not Resolved]
  - Fatigue [Not Recovered/Not Resolved]
  - Vitamin D decreased [Not Recovered/Not Resolved]
  - Asthenia [Not Recovered/Not Resolved]
  - Muscle mass [Not Recovered/Not Resolved]
  - Drug ineffective [Unknown]
  - Therapeutic response decreased [Unknown]
  - Product use in unapproved indication [Unknown]

NARRATIVE: CASE EVENT DATE: 20220101
